FAERS Safety Report 6207690-1 (Version None)
Quarter: 2009Q2

REPORT INFORMATION
  Report Type: 
  Country: None (occurrence: None)
  Receive Date: 20090528
  Receipt Date: 20090520
  Transmission Date: 20091009
  Serious: Yes (Death)
  Sender: FDA-Public Use
  Company Number: ZA-ABBOTT-09P-143-0574712-00

PATIENT
  Age: 38 Year
  Sex: Male

DRUGS (2)
  1. EPILIM TABLETS [Suspect]
     Indication: SUICIDE ATTEMPT
     Route: 048
  2. EPILIM [Concomitant]
     Indication: CONVULSION
     Route: 048

REACTIONS (2)
  - COMPLETED SUICIDE [None]
  - INTENTIONAL OVERDOSE [None]
